FAERS Safety Report 9764729 (Version 1)
Quarter: 2013Q4

REPORT INFORMATION
  Report Type: Spontaneous
  Country: US (occurrence: US)
  Receive Date: 20131217
  Receipt Date: 20131217
  Transmission Date: 20140711
  Serious: No
  Sender: FDA-Public Use
  Company Number: US-BIOGENIDEC-2013BI110926

PATIENT
  Age: 37 Year
  Sex: Male

DRUGS (9)
  1. TECFIDERA [Suspect]
     Indication: MULTIPLE SCLEROSIS
     Route: 048
     Dates: start: 20130919
  2. TECFIDERA [Suspect]
     Indication: MULTIPLE SCLEROSIS
     Route: 048
  3. LUMIGAN [Concomitant]
  4. COMBIGAN [Concomitant]
  5. TYLENOL [Concomitant]
  6. BACLOFEN [Concomitant]
  7. PRILOSEC [Concomitant]
  8. NAMENDA [Concomitant]
  9. VIT D [Concomitant]

REACTIONS (2)
  - Prescribed underdose [Unknown]
  - Vomiting [Recovered/Resolved]
